FAERS Safety Report 5001688-7 (Version None)
Quarter: 2006Q2

REPORT INFORMATION
  Report Type: 
  Country: None (occurrence: None)
  Receive Date: 20060512
  Receipt Date: 20060512
  Transmission Date: 20061013
  Serious: Yes (Life-Threatening, Other)
  Sender: FDA-Public Use
  Company Number: None

PATIENT
  Age: 28 Year
  Sex: Female
  Weight: 58.9676 kg

DRUGS (1)
  1. DOXYCYCLINE [Suspect]
     Indication: PROPHYLAXIS
     Dosage: ONE BID 5 DAYS; ONE   BID THEN QD  PO  ONE PILL ONLY
     Route: 048
     Dates: start: 20060201, end: 20060201

REACTIONS (8)
  - BURN OESOPHAGEAL [None]
  - CHEST PAIN [None]
  - DRUG HYPERSENSITIVITY [None]
  - MEDICATION ERROR [None]
  - OESOPHAGEAL SPASM [None]
  - OESOPHAGEAL ULCER [None]
  - PRURITUS [None]
  - VOMITING [None]
